FAERS Safety Report 15967113 (Version 1)
Quarter: 2019Q1

REPORT INFORMATION
  Report Type: Spontaneous
  Country: US (occurrence: US)
  Receive Date: 20190215
  Receipt Date: 20190215
  Transmission Date: 20190418
  Serious: Yes (Other)
  Sender: FDA-Public Use
  Company Number: None

PATIENT
  Age: 80 Year
  Sex: Female
  Weight: 56.93 kg

DRUGS (7)
  1. FARESTON [Concomitant]
     Active Substance: TOREMIFENE CITRATE
  2. TAMOXIFEN [Suspect]
     Active Substance: TAMOXIFEN
     Indication: BREAST CANCER
     Route: 048
     Dates: start: 20181221
  3. CAPECITABINE. [Concomitant]
     Active Substance: CAPECITABINE
  4. APAP [Concomitant]
     Active Substance: ACETAMINOPHEN
  5. ASPIRIN. [Concomitant]
     Active Substance: ASPIRIN
  6. FASLODEX [Concomitant]
     Active Substance: FULVESTRANT
  7. AFINITOR [Concomitant]
     Active Substance: EVEROLIMUS

REACTIONS (1)
  - Blood count abnormal [None]
